FAERS Safety Report 22085882 (Version 1)
Quarter: 2023Q1

REPORT INFORMATION
  Report Type: Spontaneous
  Country: US (occurrence: None)
  Receive Date: 20230310
  Receipt Date: 20230310
  Transmission Date: 20230417
  Serious: No
  Sender: FDA-Public Use
  Company Number: None

PATIENT
  Sex: Male

DRUGS (1)
  1. HUMIRA [Suspect]
     Active Substance: ADALIMUMAB
     Indication: Inflammatory bowel disease
     Dosage: 40MG/0.4ML  EVERY 7 DAYS UNDER THE SKIN ? ?
     Route: 058
     Dates: start: 202001

REACTIONS (7)
  - Abdominal pain upper [None]
  - Fatigue [None]
  - Nausea [None]
  - Dyspepsia [None]
  - Condition aggravated [None]
  - Mouth ulceration [None]
  - Drug ineffective [None]
